FAERS Safety Report 8193419-7 (Version None)
Quarter: 2012Q1

REPORT INFORMATION
  Report Type: 
  Country: None (occurrence: None)
  Receive Date: 20120308
  Receipt Date: 20120302
  Transmission Date: 20120608
  Serious: Yes (Hospitalization)
  Sender: FDA-Public Use
  Company Number: US-PFIZER INC-2012022420

PATIENT
  Sex: Male
  Weight: 74.83 kg

DRUGS (1)
  1. BENEFIX [Suspect]
     Indication: FACTOR IX DEFICIENCY
     Dosage: 6000 UNITS, ALTERNATE DAY
     Route: 058
     Dates: start: 19970101

REACTIONS (1)
  - MUSCLE HAEMORRHAGE [None]
